FAERS Safety Report 12998032 (Version 3)
Quarter: 2016Q4

REPORT INFORMATION
  Report Type: Report from Study
  Country: US (occurrence: US)
  Receive Date: 20161205
  Receipt Date: 20161221
  Transmission Date: 20170207
  Serious: Yes (Hospitalization, Other)
  Sender: FDA-Public Use
  Company Number: US-GILEAD-2016-0246677

PATIENT
  Age: 76 Year
  Sex: Female
  Weight: 71.1 kg

DRUGS (4)
  1. AMBRISENTAN [Suspect]
     Active Substance: AMBRISENTAN
     Indication: SARCOIDOSIS
  2. ADCIRCA [Concomitant]
     Active Substance: TADALAFIL
     Dosage: 40 MG, UNK
     Route: 048
  3. AMBRISENTAN [Suspect]
     Active Substance: AMBRISENTAN
     Indication: PULMONARY ARTERIAL HYPERTENSION
     Dosage: 5 MG, QD
     Route: 048
     Dates: start: 20111006
  4. ORENITRAM [Concomitant]
     Active Substance: TREPROSTINIL

REACTIONS (1)
  - Cardiac failure congestive [Recovered/Resolved]
